FAERS Safety Report 14963366 (Version 1)
Quarter: 2018Q2

REPORT INFORMATION
  Report Type: Spontaneous
  Country: CN (occurrence: CN)
  Receive Date: 20180601
  Receipt Date: 20180601
  Transmission Date: 20180711
  Serious: Yes (Other)
  Sender: FDA-Public Use
  Company Number: CN-PFIZER INC-2018223389

PATIENT
  Age: 51 Year
  Sex: Male
  Weight: 69 kg

DRUGS (2)
  1. TIENAM [Suspect]
     Active Substance: CILASTATIN SODIUM\IMIPENEM
     Indication: LUNG INFECTION
     Dosage: 0.5 G, 3X/DAY (Q8)
     Route: 041
     Dates: start: 20180214, end: 20180222
  2. VFEND [Suspect]
     Active Substance: VORICONAZOLE
     Indication: LUNG INFECTION
     Dosage: 0.2 G, 2X/DAY (Q12)
     Route: 041
     Dates: start: 20180214, end: 20180222

REACTIONS (4)
  - Epilepsy [Recovering/Resolving]
  - Halo vision [Recovering/Resolving]
  - Mental disorder [Recovering/Resolving]
  - Delirium [Recovering/Resolving]

NARRATIVE: CASE EVENT DATE: 20180222
